FAERS Safety Report 6220507-4 (Version None)
Quarter: 2009Q2

REPORT INFORMATION
  Report Type: 
  Country: None (occurrence: None)
  Receive Date: 20090610
  Receipt Date: 20090603
  Transmission Date: 20091009
  Serious: Yes (Hospitalization, Other)
  Sender: FDA-Public Use
  Company Number: US-AMGEN-QUU344135

PATIENT
  Sex: Female
  Weight: 65.9 kg

DRUGS (23)
  1. EPOGEN [Suspect]
     Indication: ANAEMIA
     Route: 058
     Dates: start: 20080922, end: 20090422
  2. ARANESP [Suspect]
     Indication: ANAEMIA
     Dates: start: 20060101, end: 20080101
  3. NEUPOGEN [Suspect]
     Indication: DRUG USE FOR UNKNOWN INDICATION
     Dates: start: 20080711
  4. PROCRIT [Suspect]
     Dates: start: 20080101
  5. NEORAL [Concomitant]
     Dates: start: 20080103
  6. METOPROLOL SUCCINATE [Concomitant]
  7. ACTIGALL [Concomitant]
  8. FOSAMAX [Concomitant]
  9. CALCIUM CARBONATE [Concomitant]
  10. FOLIC ACID [Concomitant]
  11. MAGNESIUM OXIDE [Concomitant]
  12. NEXIUM [Concomitant]
  13. PEGASYS [Concomitant]
     Dates: start: 20080703, end: 20090417
  14. FELODIPINE [Concomitant]
  15. ZOFRAN [Concomitant]
  16. CLINDAMYCIN [Concomitant]
  17. VITAMIN D [Concomitant]
  18. MULTI-VITAMINS [Concomitant]
  19. ASPIRIN [Concomitant]
  20. CYCLOSERINE [Concomitant]
     Dates: start: 20080103
  21. LASIX [Concomitant]
  22. ALDACTONE [Concomitant]
  23. NEUPOGEN [Concomitant]

REACTIONS (4)
  - APLASIA PURE RED CELL [None]
  - LIVER TRANSPLANT [None]
  - PANCREATITIS [None]
  - STENT OCCLUSION [None]
